FAERS Safety Report 12435164 (Version 1)
Quarter: 2016Q2

REPORT INFORMATION
  Report Type: Spontaneous
  Country: US (occurrence: US)
  Receive Date: 20160603
  Receipt Date: 20160603
  Transmission Date: 20160815
  Serious: No
  Sender: FDA-Public Use
  Company Number: US-ROCHE-1656774

PATIENT
  Sex: Female

DRUGS (7)
  1. LAMICTAL [Concomitant]
     Active Substance: LAMOTRIGINE
  2. XELODA [Suspect]
     Active Substance: CAPECITABINE
     Indication: COLON CANCER
     Route: 048
     Dates: start: 20151013
  3. ONDANSETRON [Concomitant]
     Active Substance: ONDANSETRON
  4. ASPIRIN. [Concomitant]
     Active Substance: ASPIRIN
  5. XELODA [Suspect]
     Active Substance: CAPECITABINE
     Indication: VULVAL CANCER
  6. PROMETHAZINE [Concomitant]
     Active Substance: PROMETHAZINE\PROMETHAZINE HYDROCHLORIDE
  7. IBUPROFEN. [Concomitant]
     Active Substance: IBUPROFEN

REACTIONS (6)
  - Paraesthesia [Unknown]
  - Vision blurred [Unknown]
  - Drug dose omission [Unknown]
  - Nasal disorder [Unknown]
  - Stomatitis [Unknown]
  - Abdominal pain [Unknown]
